FAERS Safety Report 7812824-9 (Version None)
Quarter: 2011Q4

REPORT INFORMATION
  Report Type: 
  Country: None (occurrence: None)
  Receive Date: 20111013
  Receipt Date: 20111011
  Transmission Date: 20120403
  Serious: Yes (Death, Hospitalization)
  Sender: FDA-Public Use
  Company Number: AU-B.I. PHARMACEUTICALS,INC./RIDGEFIELD-2011-AU-01732AU

PATIENT

DRUGS (1)
  1. PRADAXA [Suspect]

REACTIONS (5)
  - RENAL FAILURE [None]
  - HAEMORRHAGE [None]
  - FALL [None]
  - COAGULOPATHY [None]
  - INTESTINAL ISCHAEMIA [None]
